FAERS Safety Report 9892724 (Version 2)
Quarter: 2014Q1

REPORT INFORMATION
  Report Type: Spontaneous
  Country: AE (occurrence: AE)
  Receive Date: 20140212
  Receipt Date: 20140212
  Transmission Date: 20141002
  Serious: Yes (Hospitalization)
  Sender: FDA-Public Use
  Company Number: AE-MERCK-1401ARE014392

PATIENT
  Age: 18 Month
  Sex: Male

DRUGS (2)
  1. AERIUS [Suspect]
     Indication: RHINITIS ALLERGIC
     Dosage: STRENGTH:0.5MG/ML, QD
     Route: 048
     Dates: start: 20140129, end: 20140129
  2. AERIUS [Suspect]
     Dosage: 75 ML (1/2 BOTTLE)
     Route: 048
     Dates: start: 20140129, end: 20140129

REACTIONS (3)
  - Gastric lavage [Recovered/Resolved]
  - Overdose [Unknown]
  - No adverse event [Unknown]
